FAERS Safety Report 19483302 (Version 2)
Quarter: 2021Q3

REPORT INFORMATION
  Report Type: Report from Study
  Country: US (occurrence: US)
  Receive Date: 20210701
  Receipt Date: 20210824
  Transmission Date: 20211014
  Serious: Yes (Hospitalization)
  Sender: FDA-Public Use
  Company Number: US-BAYER-2021-165277

PATIENT
  Age: 71 Year
  Sex: Male

DRUGS (1)
  1. XOFIGO [Suspect]
     Active Substance: RADIUM RA-223 DICHLORIDE
     Indication: HORMONE-REFRACTORY PROSTATE CANCER
     Dosage: 120.20 UCI EVERY 28 DAYS
     Dates: start: 20210518, end: 20210518

REACTIONS (4)
  - Emergency care [Unknown]
  - Dyspnoea [Unknown]
  - Asthenia [Unknown]
  - Nausea [Unknown]
